FAERS Safety Report 6235814-9 (Version None)
Quarter: 2009Q2

REPORT INFORMATION
  Report Type: 
  Country: None (occurrence: None)
  Receive Date: 20090619
  Receipt Date: 20090616
  Transmission Date: 20091009
  Serious: Yes (Hospitalization)
  Sender: FDA-Public Use
  Company Number: JP-PFIZER INC-2009213028

PATIENT
  Age: 90 Year

DRUGS (7)
  1. ALDACTONE [Suspect]
     Indication: CARDIAC FAILURE CHRONIC
     Dosage: 25 MG, 2X/DAY
     Route: 048
     Dates: start: 20090423, end: 20090428
  2. LASIX [Concomitant]
     Dosage: UNK
     Route: 048
     Dates: end: 20090410
  3. LASIX [Concomitant]
     Dosage: UNK
     Dates: start: 20090415
  4. ASPIRIN [Concomitant]
     Dosage: UNK
     Route: 048
  5. TAKEPRON [Concomitant]
     Dosage: UNK
     Route: 048
  6. ARTIST [Concomitant]
     Dosage: UNK
     Route: 048
     Dates: start: 20090413, end: 20090419
  7. DIGOSIN [Concomitant]
     Dosage: UNK
     Route: 048
     Dates: start: 20090420, end: 20090422

REACTIONS (2)
  - PLATELET COUNT DECREASED [None]
  - WHITE BLOOD CELL COUNT DECREASED [None]
